FAERS Safety Report 14706450 (Version 3)
Quarter: 2018Q2

REPORT INFORMATION
  Report Type: Spontaneous
  Country: US (occurrence: US)
  Receive Date: 20180402
  Receipt Date: 20180514
  Transmission Date: 20180711
  Serious: Yes (Other)
  Sender: FDA-Public Use
  Company Number: US-PFIZER INC-2018131748

PATIENT
  Age: 46 Year
  Sex: Female
  Weight: 99.79 kg

DRUGS (7)
  1. EMBEDA [Suspect]
     Active Substance: MORPHINE SULFATE\NALTREXONE HYDROCHLORIDE
     Indication: INTERVERTEBRAL DISC DEGENERATION
     Dosage: 30 MG, UNK
     Dates: end: 20180329
  2. EMBEDA [Suspect]
     Active Substance: MORPHINE SULFATE\NALTREXONE HYDROCHLORIDE
     Indication: NERVE COMPRESSION
  3. EMBEDA [Suspect]
     Active Substance: MORPHINE SULFATE\NALTREXONE HYDROCHLORIDE
     Indication: SYSTEMIC LUPUS ERYTHEMATOSUS
  4. HYDROXYCHLOROQUINE [Concomitant]
     Active Substance: HYDROXYCHLOROQUINE
     Indication: SYSTEMIC LUPUS ERYTHEMATOSUS
     Dosage: 200 MG, 2X/DAY
     Route: 048
  5. EMBEDA [Suspect]
     Active Substance: MORPHINE SULFATE\NALTREXONE HYDROCHLORIDE
     Indication: PAIN
     Dosage: [MORPHINE SULFATE 30MG]/ [NALTREXONE HYDROCHLORIDE 1.2 MG]
     Route: 048
     Dates: start: 20180326
  6. EMBEDA [Suspect]
     Active Substance: MORPHINE SULFATE\NALTREXONE HYDROCHLORIDE
     Indication: INTERVERTEBRAL DISC PROTRUSION
  7. EMBEDA [Suspect]
     Active Substance: MORPHINE SULFATE\NALTREXONE HYDROCHLORIDE
     Indication: SCIATICA

REACTIONS (13)
  - Heart rate abnormal [Not Recovered/Not Resolved]
  - Hypoaesthesia [Unknown]
  - Systemic lupus erythematosus [Unknown]
  - Drug effect incomplete [Unknown]
  - Contusion [Unknown]
  - Musculoskeletal discomfort [Unknown]
  - Confusional state [Unknown]
  - Vision blurred [Unknown]
  - Chest discomfort [Unknown]
  - Overweight [Unknown]
  - Injury [Unknown]
  - Lung infection [Unknown]
  - Fall [Unknown]

NARRATIVE: CASE EVENT DATE: 201803
